FAERS Safety Report 9819937 (Version 1)
Quarter: 2013Q4

REPORT INFORMATION
  Report Type: Spontaneous
  Country: US (occurrence: None)
  Receive Date: 20131223
  Receipt Date: 20131223
  Transmission Date: 20140711
  Serious: No
  Sender: FDA-Public Use
  Company Number: 218371

PATIENT
  Sex: Male

DRUGS (4)
  1. PICATO [Suspect]
     Indication: ACTINIC KERATOSIS
     Route: 061
     Dates: start: 20120710, end: 20120711
  2. INDERAL (PROPRANOLOL) [Concomitant]
  3. XANAX (ALPRAZOLAM) [Concomitant]
  4. VALIUM (DIAZEPAM) [Concomitant]

REACTIONS (5)
  - Application site burn [None]
  - Nausea [None]
  - Headache [None]
  - Application site pruritus [None]
  - Incorrect dose administered [None]
